FAERS Safety Report 5317604-4 (Version None)
Quarter: 2007Q2

REPORT INFORMATION
  Report Type: 
  Country: None (occurrence: None)
  Receive Date: 20070507
  Receipt Date: 20070425
  Transmission Date: 20071010
  Serious: Yes (Other)
  Sender: FDA-Public Use
  Company Number: PHHO2007BR05436

PATIENT
  Age: 52 Year
  Sex: Female

DRUGS (3)
  1. DIOVAN HCT [Suspect]
     Dosage: 160/12.5MG
  2. DIOVAN HCT [Suspect]
     Dosage: 80/12.5MG
  3. DIOVAN [Suspect]
     Dosage: 80 MG, QD

REACTIONS (3)
  - BLOOD PRESSURE INADEQUATELY CONTROLLED [None]
  - DRUG INEFFECTIVE [None]
  - HYPOTENSION [None]
